FAERS Safety Report 8721065 (Version 2)
Quarter: 2012Q4

REPORT INFORMATION
  Report Type: Report from Study
  Country: TH (occurrence: TH)
  Receive Date: 20120813
  Receipt Date: 20120829
  Transmission Date: 20130627
  Serious: Yes (Death, Hospitalization)
  Sender: FDA-Public Use
  Company Number: TH-ROCHE-1099885

PATIENT
  Age: 72 Year
  Sex: Male
  Weight: 57 kg

DRUGS (1)
  1. MIRCERA [Suspect]
     Indication: NEPHROGENIC ANAEMIA
     Dosage: Last dose prior to SAE:31/Jul/2012
     Route: 058
     Dates: start: 20090601

REACTIONS (1)
  - Sepsis [Fatal]
